FAERS Safety Report 22389395 (Version 1)
Quarter: 2023Q2

REPORT INFORMATION
  Report Type: Spontaneous
  Country: US (occurrence: US)
  Receive Date: 20230531
  Receipt Date: 20230531
  Transmission Date: 20230721
  Serious: No
  Sender: FDA-Public Use
  Company Number: US-ABBVIE-5177190

PATIENT
  Sex: Female

DRUGS (1)
  1. CREON [Suspect]
     Active Substance: PANCRELIPASE AMYLASE\PANCRELIPASE LIPASE\PANCRELIPASE PROTEASE
     Indication: Product used for unknown indication
     Dosage: 36,000 CREON (TWO WITH MEALS; ONE WITH SNACKS)
     Route: 048

REACTIONS (4)
  - Flatulence [Unknown]
  - Frequent bowel movements [Unknown]
  - Abdominal discomfort [Not Recovered/Not Resolved]
  - Vomiting [Unknown]
